FAERS Safety Report 13645610 (Version 1)
Quarter: 2017Q2

REPORT INFORMATION
  Report Type: Spontaneous
  Country: FR (occurrence: FR)
  Receive Date: 20170613
  Receipt Date: 20170613
  Transmission Date: 20170830
  Serious: Yes (Hospitalization)
  Sender: FDA-Public Use
  Company Number: FR-ROCHE-1945791

PATIENT
  Age: 44 Year
  Sex: Female

DRUGS (4)
  1. STRESAM [Suspect]
     Active Substance: ETIFOXINE
     Indication: ANXIETY
     Route: 048
     Dates: start: 20170505, end: 20170512
  2. ROACTEMRA [Suspect]
     Active Substance: TOCILIZUMAB
     Indication: RHEUMATOID ARTHRITIS
     Route: 041
     Dates: start: 2014
  3. ROACTEMRA [Suspect]
     Active Substance: TOCILIZUMAB
     Dosage: INJECTABLE SOLUTION 20 MG/ML
     Route: 041
     Dates: start: 20170512
  4. DONORMYL [Suspect]
     Active Substance: DOXYLAMINE SUCCINATE
     Indication: INSOMNIA
     Route: 048
     Dates: start: 20170505, end: 20170512

REACTIONS (3)
  - Swelling face [Recovered/Resolved]
  - Dyspnoea [Recovering/Resolving]
  - Rash [Recovered/Resolved]

NARRATIVE: CASE EVENT DATE: 20170512
